FAERS Safety Report 11379004 (Version 1)
Quarter: 2015Q3

REPORT INFORMATION
  Report Type: Spontaneous
  Country: GB (occurrence: None)
  Receive Date: 20150812
  Receipt Date: 20150812
  Transmission Date: 20151125
  Serious: Yes (Hospitalization)
  Sender: FDA-Public Use
  Company Number: 2015RR-101261

PATIENT
  Age: 75 Year
  Weight: 73 kg

DRUGS (8)
  1. ETOPOSIDE (ETOPOSIDE) [Suspect]
     Active Substance: ETOPOSIDE
     Indication: LUNG NEOPLASM MALIGNANT
     Dosage: CYCLE 2
     Route: 042
     Dates: start: 20150506
  2. CARBOPLATIN (CARBOPLATIN) UNKNOWN [Suspect]
     Active Substance: CARBOPLATIN
     Indication: LUNG NEOPLASM MALIGNANT
     Dosage: CYCLE 2
     Route: 042
     Dates: start: 20150506
  3. ETOPOSIDE (ETOPOSIDE) UNKNOWN [Suspect]
     Active Substance: ETOPOSIDE
     Indication: LUNG NEOPLASM MALIGNANT
     Dosage: CYCLE 2
     Route: 048
     Dates: start: 20150506
  4. CO-CODAMOL (CODEINE PHOSPHATE/PARACETAMOL) [Concomitant]
  5. ROSUVASTATIN (ROSUVASTATIN) [Concomitant]
     Active Substance: ROSUVASTATIN
  6. OMEPRAZOLE (OMEPRAZOLE) [Concomitant]
     Active Substance: OMEPRAZOLE
  7. SERTRALINE [Concomitant]
     Active Substance: SERTRALINE HYDROCHLORIDE
  8. AMIODARONE (AMIODARONE) [Concomitant]
     Active Substance: AMIODARONE

REACTIONS (2)
  - Neutropenic sepsis [None]
  - Blood electrolytes abnormal [None]

NARRATIVE: CASE EVENT DATE: 20150519
